FAERS Safety Report 14732403 (Version 2)
Quarter: 2018Q2

REPORT INFORMATION
  Report Type: Report from Study
  Country: None (occurrence: US)
  Receive Date: 20180409
  Receipt Date: 20180417
  Transmission Date: 20180711
  Serious: Yes (Hospitalization, Other)
  Sender: FDA-Public Use
  Company Number: US-ABBVIE-18K-163-2315619-00

PATIENT
  Age: 35 Year
  Sex: Female
  Weight: 60.38 kg

DRUGS (2)
  1. PHENERGAN [Concomitant]
     Active Substance: PROMETHAZINE HYDROCHLORIDE
     Indication: NAUSEA
  2. HUMIRA [Suspect]
     Active Substance: ADALIMUMAB
     Indication: CROHN^S DISEASE
     Route: 058
     Dates: start: 2014, end: 201801

REACTIONS (10)
  - Stoma site abscess [Recovered/Resolved]
  - Gastrointestinal infection [Recovered/Resolved]
  - Staphylococcal infection [Not Recovered/Not Resolved]
  - Fatigue [Not Recovered/Not Resolved]
  - Gastrointestinal fistula [Recovered/Resolved]
  - Weight decreased [Unknown]
  - Memory impairment [Not Recovered/Not Resolved]
  - Procedural pain [Recovered/Resolved]
  - Blood iron decreased [Recovering/Resolving]
  - Asthenia [Unknown]

NARRATIVE: CASE EVENT DATE: 2015
